FAERS Safety Report 19237084 (Version 1)
Quarter: 2021Q2

REPORT INFORMATION
  Report Type: Spontaneous
  Country: US (occurrence: US)
  Receive Date: 20210508
  Receipt Date: 20210508
  Transmission Date: 20210717
  Serious: No
  Sender: FDA-Public Use
  Company Number: None

PATIENT
  Age: 60 Year
  Sex: Female
  Weight: 83.7 kg

DRUGS (1)
  1. TOPOTECAN [Suspect]
     Active Substance: TOPOTECAN HYDROCHLORIDE
     Dates: end: 20210416

REACTIONS (5)
  - Vomiting [None]
  - Fatigue [None]
  - Dizziness [None]
  - Nausea [None]
  - Anaemia [None]

NARRATIVE: CASE EVENT DATE: 20210503
